FAERS Safety Report 17772850 (Version 4)
Quarter: 2021Q1

REPORT INFORMATION
  Report Type: Report from Study
  Country: BR (occurrence: BR)
  Receive Date: 20200512
  Receipt Date: 20210313
  Transmission Date: 20210419
  Serious: Yes (Other)
  Sender: FDA-Public Use
  Company Number: PHHY2019BR169567

PATIENT
  Age: 28 Year
  Sex: Female

DRUGS (3)
  1. COSENTYX [Suspect]
     Active Substance: SECUKINUMAB
     Indication: PSORIASIS
     Dosage: 300 MG, UNKNOWN
     Route: 065
     Dates: start: 20190521
  2. COSENTYX [Suspect]
     Active Substance: SECUKINUMAB
     Dosage: 300 MG, UNKNOWN
     Route: 065
     Dates: start: 20190715, end: 202003
  3. COSENTYX [Suspect]
     Active Substance: SECUKINUMAB
     Dosage: 300 MG, UNKNOWN
     Route: 065
     Dates: start: 20190708

REACTIONS (15)
  - Skin plaque [Not Recovered/Not Resolved]
  - Head injury [Not Recovered/Not Resolved]
  - Product availability issue [Unknown]
  - Skin disorder [Not Recovered/Not Resolved]
  - Limb discomfort [Not Recovered/Not Resolved]
  - Malaise [Not Recovered/Not Resolved]
  - Skin hypertrophy [Unknown]
  - Pain [Not Recovered/Not Resolved]
  - Inflammation [Unknown]
  - Ear injury [Unknown]
  - Inappropriate schedule of product administration [Unknown]
  - Skin exfoliation [Unknown]
  - Skin discolouration [Unknown]
  - Psoriasis [Not Recovered/Not Resolved]
  - Face injury [Unknown]

NARRATIVE: CASE EVENT DATE: 202005
